FAERS Safety Report 12960164 (Version 2)
Quarter: 2016Q4

REPORT INFORMATION
  Report Type: Spontaneous
  Country: IT (occurrence: IT)
  Receive Date: 20161121
  Receipt Date: 20161201
  Transmission Date: 20170207
  Serious: Yes (Other)
  Sender: FDA-Public Use
  Company Number: PHHY2016IT157643

PATIENT
  Age: 54 Year
  Sex: Female

DRUGS (2)
  1. VOLTFAST [Suspect]
     Active Substance: DICLOFENAC POTASSIUM
     Indication: DRUG ABUSE
     Dosage: TOTAL
     Route: 048
  2. SOLDESAM [Suspect]
     Active Substance: DEXAMETHASONE
     Indication: DRUG ABUSE
     Dosage: 5 DF, TOTAL
     Route: 030

REACTIONS (4)
  - Dyspnoea exertional [Recovering/Resolving]
  - Drug abuse [Recovering/Resolving]
  - Chest pain [Recovering/Resolving]
  - Abdominal pain upper [Recovering/Resolving]

NARRATIVE: CASE EVENT DATE: 20150913
